FAERS Safety Report 12771604 (Version 2)
Quarter: 2017Q1

REPORT INFORMATION
  Report Type: Report from Study
  Country: US (occurrence: US)
  Receive Date: 20160922
  Receipt Date: 20170208
  Transmission Date: 20170428
  Serious: No
  Sender: FDA-Public Use
  Company Number: US-AMGEN-USASP2016089594

PATIENT
  Age: 55 Year
  Sex: Female

DRUGS (2)
  1. NEULASTA [Suspect]
     Active Substance: PEGFILGRASTIM
     Indication: WHITE BLOOD CELL COUNT DECREASED
     Dosage: UNK
     Route: 065
     Dates: start: 201604
  2. NEUPOGEN [Suspect]
     Active Substance: FILGRASTIM
     Indication: WHITE BLOOD CELL COUNT DECREASED
     Dosage: UNK UNK, 3 TIMES/WK
     Route: 065

REACTIONS (9)
  - Inflammation [Unknown]
  - White blood cell count increased [Unknown]
  - Cough [Not Recovered/Not Resolved]
  - Paraesthesia [Not Recovered/Not Resolved]
  - Implant site induration [Recovered/Resolved]
  - Pyrexia [Unknown]
  - Implant site erythema [Not Recovered/Not Resolved]
  - Bone pain [Unknown]
  - Implant site warmth [Recovered/Resolved]

NARRATIVE: CASE EVENT DATE: 2016
